FAERS Safety Report 18505222 (Version 1)
Quarter: 2020Q4

REPORT INFORMATION
  Report Type: Spontaneous
  Country: ES (occurrence: US)
  Receive Date: 20201116
  Receipt Date: 20201116
  Transmission Date: 20210114
  Serious: Yes (Other)
  Sender: FDA-Public Use
  Company Number: ES-ABBVIE-20K-144-3648737-00

PATIENT
  Age: 33 Year
  Sex: Female
  Weight: 70 kg

DRUGS (4)
  1. FOSFOCINA [Concomitant]
     Active Substance: FOSFOMYCIN SODIUM
     Indication: URINARY TRACT INFECTION
  2. ENANTYUM [Concomitant]
     Active Substance: DEXKETOPROFEN TROMETAMOL
     Indication: NECK PAIN
     Dates: start: 20191123, end: 20191127
  3. HUMIRA [Suspect]
     Active Substance: ADALIMUMAB
     Indication: RHEUMATOID ARTHRITIS
     Route: 058
     Dates: start: 20151015, end: 20191130
  4. CARIBAN [Concomitant]
     Indication: MORNING SICKNESS
     Dosage: HARD MODIFIED RELEASE CAPSULES
     Dates: start: 20200124, end: 20200331

REACTIONS (2)
  - Abortion induced [Unknown]
  - Maternal exposure during pregnancy [Unknown]
